FAERS Safety Report 14777351 (Version 5)
Quarter: 2018Q2

REPORT INFORMATION
  Report Type: Spontaneous
  Country: US (occurrence: US)
  Receive Date: 20180419
  Receipt Date: 20180515
  Transmission Date: 20180711
  Serious: Yes (Other)
  Sender: FDA-Public Use
  Company Number: US-AMGEN-USASP2018051591

PATIENT
  Sex: Female

DRUGS (5)
  1. ENBREL [Suspect]
     Active Substance: ETANERCEPT
     Indication: RHEUMATOID ARTHRITIS
  2. MTX [Suspect]
     Active Substance: METHOTREXATE SODIUM
     Indication: RHEUMATOID ARTHRITIS
     Dosage: UNK
     Route: 048
  3. XELJANZ XR [Suspect]
     Active Substance: TOFACITINIB CITRATE
     Indication: POLYARTHRITIS
     Dosage: 11 MG, QD
     Route: 048
  4. MTX [Suspect]
     Active Substance: METHOTREXATE SODIUM
     Indication: PSORIATIC ARTHROPATHY
     Dosage: 25 MG, QWK
     Route: 058
     Dates: start: 201711
  5. ENBREL [Suspect]
     Active Substance: ETANERCEPT
     Indication: PSORIATIC ARTHROPATHY
     Dosage: UNK
     Route: 065
     Dates: end: 201705

REACTIONS (12)
  - Drug effect decreased [Unknown]
  - Nodule [Unknown]
  - Mobility decreased [Unknown]
  - Anxiety [Unknown]
  - Fear [Unknown]
  - Dactylitis [Unknown]
  - Ulcerative keratitis [Unknown]
  - Synovitis [Not Recovered/Not Resolved]
  - Psoriasis [Unknown]
  - Iritis [Unknown]
  - Gastrointestinal disorder [Unknown]
  - Musculoskeletal pain [Unknown]
